FAERS Safety Report 8696835 (Version 2)
Quarter: 2012Q4

REPORT INFORMATION
  Report Type: 
  Country: VE (occurrence: VE)
  Receive Date: 20120801
  Receipt Date: 20120830
  Transmission Date: 20130627
  Serious: Yes (Other)
  Sender: FDA-Public Use
  Company Number: VE-PFIZER INC-2012184368

PATIENT
  Age: 69 Year
  Sex: Female

DRUGS (3)
  1. LIPITOR [Suspect]
     Indication: HYPERCHOLESTEROLAEMIA
     Dosage: 20 mg, 1x/day
     Route: 048
     Dates: start: 2004, end: 201206
  2. APROVEL [Concomitant]
     Indication: HYPERTENSION
     Dosage: 300 mg, 1x/day
     Route: 048
     Dates: start: 2002
  3. DILATREND [Concomitant]
     Indication: HYPERTENSION
     Dosage: 2.5 mg, 1x/day
     Route: 048

REACTIONS (2)
  - Tonsillar disorder [Recovered/Resolved]
  - Macule [Recovered/Resolved]
